FAERS Safety Report 18630792 (Version 2)
Quarter: 2020Q4

REPORT INFORMATION
  Report Type: Spontaneous
  Country: FR (occurrence: FR)
  Receive Date: 20201218
  Receipt Date: 20201230
  Transmission Date: 20210114
  Serious: Yes (Hospitalization)
  Sender: FDA-Public Use
  Company Number: FR-EMD SERONO-E2B_90081646

PATIENT
  Age: 31 Year
  Sex: Female

DRUGS (3)
  1. BEMFOLA [Suspect]
     Active Substance: FOLLITROPIN
     Indication: IN VITRO FERTILISATION
     Route: 058
     Dates: start: 202007, end: 202007
  2. CETROTIDE [Suspect]
     Active Substance: CETRORELIX ACETATE
     Indication: IN VITRO FERTILISATION
     Route: 058
     Dates: start: 202007, end: 202007
  3. OVITRELLE [Suspect]
     Active Substance: CHORIOGONADOTROPIN ALFA
     Indication: IN VITRO FERTILISATION
     Route: 058
     Dates: start: 202007

REACTIONS (3)
  - Ovarian hyperstimulation syndrome [Recovered/Resolved]
  - Deep vein thrombosis [Recovered/Resolved]
  - Pyrexia [Recovered/Resolved]

NARRATIVE: CASE EVENT DATE: 20200729
